FAERS Safety Report 23645004 (Version 1)
Quarter: 2024Q1

REPORT INFORMATION
  Report Type: Spontaneous
  Country: IN (occurrence: IN)
  Receive Date: 20240318
  Receipt Date: 20240318
  Transmission Date: 20240409
  Serious: Yes (Hospitalization, Other)
  Sender: FDA-Public Use
  Company Number: IN-NAPPMUNDI-GBR-2024-0115103

PATIENT
  Age: 5 Month
  Sex: Male
  Weight: 6 kg

DRUGS (6)
  1. MORPHINE SULFATE [Suspect]
     Active Substance: MORPHINE SULFATE
     Indication: Epidural analgesia
     Dosage: 200 MCG (PRESERVATIVE-FREE MORPHINE)
     Route: 008
  2. DEXTROSE [Concomitant]
     Active Substance: DEXTROSE\DEXTROSE MONOHYDRATE
     Indication: Product used for unknown indication
     Dosage: UNK
     Route: 042
  3. LACTATED RINGERS SOLUTION [Concomitant]
     Active Substance: CALCIUM CHLORIDE\POTASSIUM CHLORIDE\SODIUM CHLORIDE\SODIUM LACTATE
     Indication: Product used for unknown indication
     Dosage: UNK
     Route: 042
  4. ROPIVACAINE [Concomitant]
     Active Substance: ROPIVACAINE
     Indication: Anaesthesia
     Dosage: 5 MILLILITER
     Route: 008
  5. ATRACURIUM [Concomitant]
     Active Substance: ATRACURIUM
     Indication: Muscle relaxant therapy
     Dosage: UNK
     Route: 065
  6. SODIUM CHLORIDE [Concomitant]
     Active Substance: SODIUM CHLORIDE
     Indication: Product used for unknown indication
     Dosage: 2 MILLILITER
     Route: 065

REACTIONS (2)
  - Clonic convulsion [Recovered/Resolved]
  - Motor dysfunction [Recovered/Resolved]
